FAERS Safety Report 4359287-6 (Version None)
Quarter: 2004Q2

REPORT INFORMATION
  Report Type: 
  Country: None (occurrence: None)
  Receive Date: 20040518
  Receipt Date: 20040507
  Transmission Date: 20050107
  Serious: Yes (Other)
  Sender: FDA-Public Use
  Company Number: PHBS2004CH06215

PATIENT
  Age: 75 Year
  Sex: Female

DRUGS (4)
  1. VOLTAREN [Suspect]
     Indication: MUSCLE STRAIN
     Dosage: 100 MG/DAY
     Dates: start: 20040218, end: 20040218
  2. VOLTAREN [Suspect]
     Dosage: 50 MG/DAY
     Dates: start: 20040219, end: 20040219
  3. VOLTAREN [Suspect]
     Dosage: 100 MG/DAY
     Dates: start: 20040225, end: 20040225
  4. VOLTAREN [Suspect]
     Dosage: 50 MG/DAY
     Dates: start: 20040226, end: 20040226

REACTIONS (10)
  - CAROTID ARTERY STENOSIS [None]
  - DISORIENTATION [None]
  - DISTURBANCE IN ATTENTION [None]
  - MEMORY IMPAIRMENT [None]
  - PARAESTHESIA [None]
  - PARALYSIS FLACCID [None]
  - PRE-EXISTING CONDITION IMPROVED [None]
  - TRANSIENT ISCHAEMIC ATTACK [None]
  - UNEXPECTED THERAPEUTIC DRUG EFFECT [None]
  - VISUAL ACUITY REDUCED [None]
